FAERS Safety Report 18772460 (Version 1)
Quarter: 2021Q1

REPORT INFORMATION
  Report Type: Spontaneous
  Country: US (occurrence: US)
  Receive Date: 20210121
  Receipt Date: 20210121
  Transmission Date: 20210419
  Serious: Yes (Other)
  Sender: FDA-Public Use
  Company Number: None

PATIENT
  Age: 51 Year
  Sex: Male
  Weight: 148.3 kg

DRUGS (2)
  1. NACL 0.9% 250ML IV BAG [Concomitant]
     Dates: start: 20210121, end: 20210121
  2. BAMLANIVIMAB 700 MG IN SODIUM CHLORIDE 0.9 % 270 ML INFUSION [Suspect]
     Active Substance: BAMLANIVIMAB
     Indication: COVID-19
     Dates: start: 20210121, end: 20210121

REACTIONS (6)
  - Infusion related reaction [None]
  - Oxygen saturation decreased [None]
  - Nausea [None]
  - Blood pressure decreased [None]
  - Bradycardia [None]
  - Heart rate decreased [None]

NARRATIVE: CASE EVENT DATE: 20210121
